FAERS Safety Report 10098132 (Version 1)
Quarter: 2014Q2

REPORT INFORMATION
  Report Type: Spontaneous
  Country: GB (occurrence: None)
  Receive Date: 20140421
  Receipt Date: 20140421
  Transmission Date: 20141212
  Serious: Yes (Other)
  Sender: FDA-Public Use
  Company Number: AUR-APL-2014-04566

PATIENT
  Age: 67 Year
  Sex: Female
  Weight: 82.7 kg

DRUGS (2)
  1. BISOPROLOL [Suspect]
     Indication: HYPERTENSION
     Dosage: 3.75 MG (3.75 MG, 1 IN 1 D
     Dates: start: 201312
  2. LEVOTHYROXINE (LEVOTHYROXINE) [Concomitant]

REACTIONS (7)
  - Headache [None]
  - Hypoaesthesia [None]
  - Skin discolouration [None]
  - Pain in extremity [None]
  - Pruritus [None]
  - Eye pruritus [None]
  - Pain [None]
